FAERS Safety Report 23973492 (Version 1)
Quarter: 2024Q2

REPORT INFORMATION
  Report Type: Report from Study
  Country: US (occurrence: US)
  Receive Date: 20240613
  Receipt Date: 20240613
  Transmission Date: 20240716
  Serious: No
  Sender: FDA-Public Use
  Company Number: US-ACADIA PHARMACEUTICALS INC.-ACA-2024-PIM-002526

PATIENT
  Sex: Male

DRUGS (20)
  1. NUPLAZID [Suspect]
     Active Substance: PIMAVANSERIN TARTRATE
     Indication: Parkinson^s disease psychosis
     Dosage: 34 MILLIGRAM, QD
     Route: 048
  2. NUPLAZID [Suspect]
     Active Substance: PIMAVANSERIN TARTRATE
     Dosage: 34 MILLIGRAM, QD
     Route: 048
     Dates: start: 20240520
  3. OCUVITE [ASCORBIC ACID;RETINOL;TOCOPHEROL] [Concomitant]
  4. GLUCOSE [ASCORBIC ACID;GLUCOSE] [Concomitant]
  5. ZOFRAN [Concomitant]
     Active Substance: ONDANSETRON HYDROCHLORIDE
  6. AMLODIPINE [Concomitant]
     Active Substance: AMLODIPINE BESYLATE
  7. VITAMIN B12 [Concomitant]
     Active Substance: CYANOCOBALAMIN
  8. SEVELAMER CARBONATE [Concomitant]
     Active Substance: SEVELAMER CARBONATE
  9. AMIODARONE [Concomitant]
     Active Substance: AMIODARONE
  10. METOPROLOL [Concomitant]
     Active Substance: METOPROLOL
  11. GLUCAGON [Concomitant]
     Active Substance: GLUCAGON\GLUCAGON HYDROCHLORIDE\WATER
  12. VENTOLIN [Concomitant]
     Active Substance: ALBUTEROL SULFATE
  13. MODAFINIL [Concomitant]
     Active Substance: MODAFINIL
  14. ABILIFY [Concomitant]
     Active Substance: ARIPIPRAZOLE
  15. DULOXETINE [Concomitant]
     Active Substance: DULOXETINE
  16. CHOLECALCIFEROL [Concomitant]
     Active Substance: CHOLECALCIFEROL
  17. ROSUVASTATIN [Concomitant]
     Active Substance: ROSUVASTATIN
  18. CARBIDOPA LEVODOPA [Concomitant]
     Active Substance: CARBIDOPA\LEVODOPA
  19. OXYBUTYNIN [Concomitant]
     Active Substance: OXYBUTYNIN\OXYBUTYNIN CHLORIDE
  20. MIRALAX [Concomitant]
     Active Substance: POLYETHYLENE GLYCOL 3350

REACTIONS (6)
  - Abdominal discomfort [Not Recovered/Not Resolved]
  - Product dose omission issue [Recovered/Resolved]
  - Dialysis [Not Recovered/Not Resolved]
  - Gait disturbance [Not Recovered/Not Resolved]
  - Constipation [Not Recovered/Not Resolved]
  - Nausea [Not Recovered/Not Resolved]
